FAERS Safety Report 18596093 (Version 20)
Quarter: 2025Q3

REPORT INFORMATION
  Report Type: Report from Study
  Country: US (occurrence: US)
  Receive Date: 20201209
  Receipt Date: 20250926
  Transmission Date: 20251021
  Serious: Yes (Hospitalization, Other)
  Sender: TAKEDA
  Company Number: US-TAKEDA-2020TUS053778

PATIENT
  Age: 64 Year
  Sex: Female
  Weight: 62 kg

DRUGS (36)
  1. HUMAN IMMUNOGLOBULIN G [Suspect]
     Active Substance: HUMAN IMMUNOGLOBULIN G
     Indication: Congenital hypogammaglobulinaemia
     Dosage: 12 GRAM, 1/WEEK
  2. HUMAN IMMUNOGLOBULIN G [Suspect]
     Active Substance: HUMAN IMMUNOGLOBULIN G
     Indication: Illness
  3. HUMAN IMMUNOGLOBULIN G [Suspect]
     Active Substance: HUMAN IMMUNOGLOBULIN G
     Dosage: 12 GRAM, 1/WEEK
  4. ACETAMINOPHEN [Concomitant]
     Active Substance: ACETAMINOPHEN
  5. EPINEPHRINE [Concomitant]
     Active Substance: EPINEPHRINE
  6. DIPHENHYDRAMINE [Concomitant]
     Active Substance: DIPHENHYDRAMINE
  7. DEPAKOTE [Concomitant]
     Active Substance: DIVALPROEX SODIUM
  8. GENTAMICIN [Concomitant]
     Active Substance: GENTAMICIN
  9. BOTOX [Concomitant]
     Active Substance: ONABOTULINUMTOXINA
  10. TRAMADOL [Concomitant]
     Active Substance: TRAMADOL
  11. PROPRANOLOL HYDROCHLORIDE [Concomitant]
     Active Substance: PROPRANOLOL HYDROCHLORIDE
  12. BETAMETHASONE\CLOTRIMAZOLE [Concomitant]
     Active Substance: BETAMETHASONE\CLOTRIMAZOLE
  13. CLORAZEPATE DIPOTASSIUM [Concomitant]
     Active Substance: CLORAZEPATE DIPOTASSIUM
  14. TIZANIDINE HYDROCHLORIDE [Concomitant]
     Active Substance: TIZANIDINE HYDROCHLORIDE
  15. FENOFIBRATE [Concomitant]
     Active Substance: FENOFIBRATE
  16. VITAMIN B COMPLEX [Concomitant]
     Active Substance: CYANOCOBALAMIN\DEXPANTHENOL\NIACINAMIDE\PYRIDOXINE HYDROCHLORIDE\RIBOFLAVIN 5^-PHOSPHATE SODIUM\THIA
  17. PROMETHAZINE HYDROCHLORIDE [Concomitant]
     Active Substance: PROMETHAZINE HYDROCHLORIDE
  18. VITAMIN D2 [Concomitant]
     Active Substance: ERGOCALCIFEROL
  19. LUNESTA [Concomitant]
     Active Substance: ESZOPICLONE
  20. HYDROXYZINE HYDROCHLORIDE [Concomitant]
     Active Substance: HYDROXYZINE HYDROCHLORIDE
  21. FLUBLOK [Concomitant]
     Active Substance: INFLUENZA VIRUS VACCINE
  22. GENTAMICIN SULFATE [Concomitant]
     Active Substance: GENTAMICIN SULFATE
  23. ONDANSETRON HYDROCHLORIDE [Concomitant]
     Active Substance: ONDANSETRON HYDROCHLORIDE
  24. FLUBLOK QUADRIVALENT NOS [Concomitant]
     Active Substance: INFLUENZA VIRUS VACCINE
  25. CLORAZEPATE DIPOTASSIUM [Concomitant]
     Active Substance: CLORAZEPATE DIPOTASSIUM
  26. CETIRIZINE HCL [Concomitant]
     Active Substance: CETIRIZINE HYDROCHLORIDE
  27. CYANOCOBALAMIN [Concomitant]
     Active Substance: CYANOCOBALAMIN
  28. LIDOCAINE [Concomitant]
     Active Substance: LIDOCAINE
  29. DIPHENHYDRAMINE HYDROCHLORIDE [Concomitant]
     Active Substance: DIPHENHYDRAMINE HYDROCHLORIDE
  30. MAGNESIUM CHLORIDE [Concomitant]
     Active Substance: MAGNESIUM CHLORIDE
  31. PERCOCET [Concomitant]
     Active Substance: ACETAMINOPHEN\OXYCODONE HYDROCHLORIDE
  32. AIMOVIG [Concomitant]
     Active Substance: ERENUMAB-AOOE
  33. Lmx [Concomitant]
  34. VITAMIN B COMPLEX [Concomitant]
     Active Substance: CYANOCOBALAMIN\DEXPANTHENOL\NIACINAMIDE\PYRIDOXINE HYDROCHLORIDE\RIBOFLAVIN 5^-PHOSPHATE SODIUM\THIA
  35. WELLBUTRIN XL [Concomitant]
     Active Substance: BUPROPION HYDROCHLORIDE
  36. CETIRIZINE HYDROCHLORIDE [Concomitant]
     Active Substance: CETIRIZINE HYDROCHLORIDE

REACTIONS (25)
  - Haematemesis [Unknown]
  - Bronchitis [Unknown]
  - Ulcer haemorrhage [Unknown]
  - Infusion site pruritus [Unknown]
  - Nausea [Unknown]
  - Device infusion issue [Unknown]
  - Urinary tract infection [Unknown]
  - Illness [Unknown]
  - Oropharyngeal candidiasis [Unknown]
  - Insurance issue [Unknown]
  - Cystitis [Unknown]
  - Haematological infection [Unknown]
  - Infusion related reaction [Unknown]
  - Localised infection [Unknown]
  - Infusion site discharge [Unknown]
  - Product dose omission issue [Unknown]
  - Device malfunction [Unknown]
  - Allergy to immunoglobulin therapy [Unknown]
  - Infection [Unknown]
  - Injection site haemorrhage [Unknown]
  - Infusion site haemorrhage [Unknown]
  - Pruritus [Unknown]
  - Infusion site scar [Unknown]
  - Infusion site bruising [Unknown]
  - Infusion site pain [Unknown]

NARRATIVE: CASE EVENT DATE: 20230306
